FAERS Safety Report 11439611 (Version 1)
Quarter: 2015Q3

REPORT INFORMATION
  Report Type: Spontaneous
  Country: JP (occurrence: None)
  Receive Date: 20150828
  Receipt Date: 20150828
  Transmission Date: 20151125
  Serious: Yes (Other)
  Sender: FDA-Public Use
  Company Number: COR_00373_2015

PATIENT

DRUGS (4)
  1. CYCLOPHOSPHAMIDE (CYCLOPHOSPHATE) [Suspect]
     Active Substance: CYCLOPHOSPHAMIDE
     Indication: DIFFUSE LARGE B-CELL LYMPHOMA
     Dosage: ON DAYS -7 AND -6
  2. ETOPOSIDE (ETOPOSIDE) [Suspect]
     Active Substance: ETOPOSIDE
     Indication: DIFFUSE LARGE B-CELL LYMPHOMA
     Dosage: ON DAYS -6 TO -4
  3. MESNA. [Concomitant]
     Active Substance: MESNA
  4. RANIMUSTINE (RANIMUSTINE) [Suspect]
     Active Substance: RANIMUSTINE
     Indication: DIFFUSE LARGE B-CELL LYMPHOMA
     Dosage: ON DAYS -3 AND -2

REACTIONS (1)
  - Renal impairment [None]
